FAERS Safety Report 10307435 (Version 1)
Quarter: 2014Q3

REPORT INFORMATION
  Report Type: Spontaneous
  Country: US (occurrence: None)
  Receive Date: 20140714
  Receipt Date: 20140714
  Transmission Date: 20150326
  Serious: Yes (Life-Threatening)
  Sender: FDA-Public Use
  Company Number: None

PATIENT
  Age: 64 Year
  Sex: Female
  Weight: 103.42 kg

DRUGS (5)
  1. AMARYL [Concomitant]
     Active Substance: GLIMEPIRIDE
  2. VITORIN [Concomitant]
  3. DIOVAN [Concomitant]
     Active Substance: VALSARTAN
  4. JANUVIA [Suspect]
     Active Substance: SITAGLIPTIN PHOSPHATE
     Indication: BLOOD GLUCOSE INCREASED
     Dosage: BY MOUTH, 90 DAY SUPPLY
     Dates: start: 20140110, end: 20140110
  5. ACTOS [Concomitant]
     Active Substance: PIOGLITAZONE HYDROCHLORIDE

REACTIONS (16)
  - Vomiting [None]
  - Pruritus [None]
  - Malaise [None]
  - Lip pruritus [None]
  - Swollen tongue [None]
  - Headache [None]
  - Nausea [None]
  - Oropharyngeal pain [None]
  - Aphagia [None]
  - Drug dose omission [None]
  - Abdominal pain upper [None]
  - Asthenia [None]
  - Hyperhidrosis [None]
  - Swelling face [None]
  - Skin burning sensation [None]
  - Lip swelling [None]

NARRATIVE: CASE EVENT DATE: 20140710
